FAERS Safety Report 9705624 (Version 1)
Quarter: 2013Q4

REPORT INFORMATION
  Report Type: Spontaneous
  Country: US (occurrence: US)
  Receive Date: 20131122
  Receipt Date: 20131122
  Transmission Date: 20140711
  Serious: No
  Sender: FDA-Public Use
  Company Number: US-GILEAD-2008-0017241

PATIENT
  Sex: Female

DRUGS (10)
  1. LETAIRIS [Suspect]
     Indication: PULMONARY ARTERIAL HYPERTENSION
     Route: 048
     Dates: start: 20080425
  2. REVATIO [Concomitant]
     Route: 048
  3. CARVEDILOL [Concomitant]
     Route: 048
  4. DIOVAN [Concomitant]
     Route: 048
  5. SPIRONOLACT [Concomitant]
     Route: 048
  6. NEXIUM [Concomitant]
     Route: 048
  7. NITRODISC [Concomitant]
     Route: 048
  8. CLARITIN [Concomitant]
     Route: 048
  9. ZYRTEC [Concomitant]
     Route: 048
  10. CLONAZEPAM [Concomitant]
     Route: 048

REACTIONS (1)
  - Nasal congestion [Recovered/Resolved]
